FAERS Safety Report 7251911-3 (Version None)
Quarter: 2011Q1

REPORT INFORMATION
  Report Type: 
  Country: None (occurrence: None)
  Receive Date: 20110128
  Receipt Date: 20100111
  Transmission Date: 20110831
  Serious: No
  Sender: FDA-Public Use
  Company Number: US-ABBOTT-10P-163-0618583-00

PATIENT
  Sex: Male
  Weight: 79.45 kg

DRUGS (1)
  1. HUMIRA [Suspect]
     Indication: PSORIASIS
     Dates: start: 20091119

REACTIONS (8)
  - MEDICAL DEVICE COMPLICATION [None]
  - PARAESTHESIA [None]
  - OEDEMA PERIPHERAL [None]
  - ERYTHEMA [None]
  - HYPOAESTHESIA [None]
  - NODULE [None]
  - PYREXIA [None]
  - ARTHRALGIA [None]
